FAERS Safety Report 9564939 (Version 3)
Quarter: 2013Q4

REPORT INFORMATION
  Report Type: Report from Study
  Country: AR (occurrence: AR)
  Receive Date: 20130930
  Receipt Date: 20131224
  Transmission Date: 20140711
  Serious: Yes (Hospitalization, Other)
  Sender: FDA-Public Use
  Company Number: PHHY2013AR108756

PATIENT
  Sex: Male

DRUGS (2)
  1. DIOVAN [Suspect]
     Indication: HYPERTENSION
     Dosage: 1.5 TABLETS (160 MG) DAILY (1 TABLET IN THE MORNING AND HALF IN THE EVENING)
     Route: 048
  2. DIOVAN [Suspect]
     Dosage: 2 TABLETS (160 MG), A DAY

REACTIONS (10)
  - Urinary bladder polyp [Not Recovered/Not Resolved]
  - Arterial occlusive disease [Unknown]
  - Malaise [Not Recovered/Not Resolved]
  - Head injury [Not Recovered/Not Resolved]
  - Haemorrhage [Not Recovered/Not Resolved]
  - Blood pressure increased [Unknown]
  - Blood pressure inadequately controlled [Unknown]
  - Abdominal pain upper [Not Recovered/Not Resolved]
  - Hypotension [Not Recovered/Not Resolved]
  - Wrong technique in drug usage process [Not Recovered/Not Resolved]
